FAERS Safety Report 8609624 (Version 2)
Quarter: 2012Q4

REPORT INFORMATION
  Report Type: 
  Country: US (occurrence: US)
  Receive Date: 20120612
  Receipt Date: 20120910
  Transmission Date: 20130627
  Serious: Yes (Hospitalization, Other)
  Sender: FDA-Public Use
  Company Number: US-BAYER-2012-057321

PATIENT
  Age: 20 Year
  Sex: Female
  Weight: 56.69 kg

DRUGS (17)
  1. YASMIN [Suspect]
     Indication: ACNE
     Dosage: UNK
     Dates: start: 20060428, end: 20081128
  2. YASMIN [Suspect]
     Indication: CONTRACEPTION
  3. VITAMIN C [Concomitant]
  4. IBUPROFEN [Concomitant]
  5. DOXYCYCLINE HYCLATE [Concomitant]
     Dosage: 100 mg, BID
     Route: 048
  6. PLAN B [Concomitant]
  7. RITALIN [Concomitant]
     Dosage: 20 mg, daily
     Route: 048
  8. CIPROFLOXACIN [Concomitant]
     Dosage: 500 mg, daily
     Route: 048
  9. ZITHROMAX [Concomitant]
  10. TOPICAL PRODUCTS FOR JOINT AND MUSCULAR PAIN [Concomitant]
  11. BIAXIN [Concomitant]
  12. CHERATUSSIN AC [Concomitant]
  13. ERYTHROMYCIN [Concomitant]
     Dosage: 250 mg, each day
     Route: 048
  14. IBUPROFEN [Concomitant]
  15. KEFLEX [Concomitant]
  16. MEPROZINE [Concomitant]
  17. NORCO [Concomitant]
     Indication: PAIN MANAGEMENT

REACTIONS (6)
  - Deep vein thrombosis [None]
  - Deep vein thrombosis [None]
  - Injury [None]
  - Pain [None]
  - Fear [None]
  - Anxiety [None]
